FAERS Safety Report 11768244 (Version 1)
Quarter: 2015Q4

REPORT INFORMATION
  Report Type: Spontaneous
  Country: US (occurrence: None)
  Receive Date: 20151120
  Receipt Date: 20151120
  Transmission Date: 20160304
  Serious: Yes (Other)
  Sender: FDA-Public Use
  Company Number: None

PATIENT
  Age: 37 Year
  Sex: Male
  Weight: 61.24 kg

DRUGS (3)
  1. VITAMIN D3 [Concomitant]
     Active Substance: CHOLECALCIFEROL
  2. AMOXICILLIN 500 MG SANDOZ [Suspect]
     Active Substance: AMOXICILLIN
     Indication: INFECTION PROPHYLAXIS
     Dosage: 1 PILL
     Route: 048
     Dates: start: 20151113, end: 20151118
  3. MULTIVITAMIN W/ MINERALS [Concomitant]

REACTIONS (3)
  - Rash pruritic [None]
  - Rash erythematous [None]
  - Oropharyngeal pain [None]

NARRATIVE: CASE EVENT DATE: 20151115
